FAERS Safety Report 15359529 (Version 1)
Quarter: 2018Q3

REPORT INFORMATION
  Report Type: Report from Study
  Country: KR (occurrence: KR)
  Receive Date: 20180907
  Receipt Date: 20180907
  Transmission Date: 20181010
  Serious: Yes (Other)
  Sender: FDA-Public Use
  Company Number: KR-ROCHE-2160072

PATIENT
  Age: 54 Year
  Sex: Female
  Weight: 50 kg

DRUGS (11)
  1. TRASTUZUMAB EMTANSINE [Suspect]
     Active Substance: ADO-TRASTUZUMAB EMTANSINE
     Indication: BREAST CANCER METASTATIC
     Dosage: ADDITIONAL DOSES RECEIVED ON 09/FEB/2018, 06/MAR/2018, 27/MAR/2018, 27/JUN/2018 AND 18/JUL/2018
     Route: 065
     Dates: start: 20180119
  2. NEURONTIN (SOUTH KOREA) [Concomitant]
     Route: 048
  3. LEXAPRO [Concomitant]
     Active Substance: ESCITALOPRAM OXALATE
     Route: 048
     Dates: start: 20120502
  4. MYPOL (ACETAMINOPHEN/CODEINE PHOSPHATE/IBUPROFEN) [Concomitant]
     Route: 048
     Dates: start: 20130710
  5. LYRICA [Concomitant]
     Active Substance: PREGABALIN
     Route: 048
     Dates: start: 20120502
  6. MAGNESIUM OXIDE. [Concomitant]
     Active Substance: MAGNESIUM OXIDE
     Route: 048
     Dates: start: 20140626
  7. ZOLPIRAM [Concomitant]
     Active Substance: ZOLPIDEM TARTRATE
     Route: 048
     Dates: start: 20120710
  8. LIPITOR [Concomitant]
     Active Substance: ATORVASTATIN CALCIUM
     Route: 048
     Dates: start: 20150630
  9. ULTRACET [Concomitant]
     Active Substance: ACETAMINOPHEN\TRAMADOL HYDROCHLORIDE
     Route: 048
     Dates: start: 20160318
  10. ALPRAM [Concomitant]
     Active Substance: ALPRAZOLAM
     Route: 048
     Dates: start: 20120502
  11. OXYCONTIN [Concomitant]
     Active Substance: OXYCODONE HYDROCHLORIDE
     Route: 048
     Dates: start: 20120918

REACTIONS (1)
  - Cardiac failure [Recovered/Resolved]

NARRATIVE: CASE EVENT DATE: 20180327
